FAERS Safety Report 7523175-4 (Version None)
Quarter: 2011Q2

REPORT INFORMATION
  Report Type: 
  Country: None (occurrence: None)
  Receive Date: 20110603
  Receipt Date: 20110519
  Transmission Date: 20111010
  Serious: Yes (Hospitalization)
  Sender: FDA-Public Use
  Company Number: US-UCBSA-027424

PATIENT
  Sex: Male
  Weight: 104 kg

DRUGS (3)
  1. LANTUS [Suspect]
     Dosage: 40 UNITS
  2. REGULAR INSULIN [Suspect]
     Dosage: 30 UNITS
  3. CIMZIA [Suspect]
     Route: 058
     Dates: start: 20100101

REACTIONS (2)
  - PERIRECTAL ABSCESS [None]
  - HYPOGLYCAEMIA [None]
